FAERS Safety Report 19196657 (Version 1)
Quarter: 2021Q2

REPORT INFORMATION
  Report Type: Spontaneous
  Country: US (occurrence: US)
  Receive Date: 20210429
  Receipt Date: 20210429
  Transmission Date: 20210717
  Serious: No
  Sender: FDA-Public Use
  Company Number: US-CELGENEUS-USA-20210404772

PATIENT
  Sex: Female

DRUGS (1)
  1. ONUREG [Suspect]
     Active Substance: AZACITIDINE
     Indication: PRODUCT USED FOR UNKNOWN INDICATION
     Dosage: DOSE : TAKE 1 TABLETS;     FREQ : ONCE DAILY FOR 14 DAYS OFF 14 DAYS
     Route: 048
     Dates: start: 20210416

REACTIONS (1)
  - Nausea [Unknown]
